FAERS Safety Report 23259836 (Version 2)
Quarter: 2023Q4

REPORT INFORMATION
  Report Type: Report from Study
  Country: CN (occurrence: CN)
  Receive Date: 20231204
  Receipt Date: 20231215
  Transmission Date: 20240109
  Serious: Yes (Hospitalization)
  Sender: FDA-Public Use
  Company Number: CN-Eisai-EC-2023-153947

PATIENT
  Age: 55 Year
  Sex: Male
  Weight: 55 kg

DRUGS (12)
  1. LENVATINIB [Suspect]
     Active Substance: LENVATINIB
     Indication: Hepatocellular carcinoma
     Route: 048
     Dates: start: 20210629, end: 20220116
  2. LENVATINIB [Suspect]
     Active Substance: LENVATINIB
     Route: 048
     Dates: start: 20220117, end: 20220117
  3. LENVATINIB [Suspect]
     Active Substance: LENVATINIB
     Route: 048
     Dates: start: 20220207, end: 202203
  4. TORIPALIMAB [Suspect]
     Active Substance: TORIPALIMAB
     Indication: Hepatocellular carcinoma
     Route: 042
     Dates: start: 20210629, end: 20211224
  5. BICYCLIC ALCOHOL [Concomitant]
     Indication: Alanine aminotransferase increased
     Route: 048
     Dates: start: 20211231, end: 20220201
  6. COMPOUND GLYCYRRHIZIN [Concomitant]
     Indication: Prophylaxis
     Route: 042
     Dates: start: 20220112, end: 20220131
  7. POLYENE PHOSPHATIDYLCHOLNE [Concomitant]
     Indication: Hepatitis
     Route: 042
     Dates: start: 20220112, end: 20220112
  8. VITAMIN C [Concomitant]
     Active Substance: ASCORBIC ACID
     Indication: Fluid replacement
     Route: 042
     Dates: start: 20220118, end: 20220118
  9. VITAMIN B6 [Concomitant]
     Active Substance: PYRIDOXINE HYDROCHLORIDE
     Indication: Fluid replacement
     Route: 042
     Dates: start: 20220118, end: 20220118
  10. CALCIUM GLUCONATE [Concomitant]
     Active Substance: CALCIUM GLUCONATE
     Indication: Prophylaxis against dehydration
     Route: 042
     Dates: end: 20220118
  11. CALTRATE [Concomitant]
     Active Substance: CALCIUM CARBONATE
     Indication: Osteoporosis prophylaxis
     Route: 048
     Dates: start: 20220113, end: 20220124
  12. GLUTATHIONE [Concomitant]
     Active Substance: GLUTATHIONE
     Indication: Nutritional supplementation
     Route: 042
     Dates: start: 20220112, end: 20220126

REACTIONS (1)
  - Immune-mediated enterocolitis [Recovered/Resolved]

NARRATIVE: CASE EVENT DATE: 20220120
